FAERS Safety Report 5588024-2 (Version None)
Quarter: 2008Q1

REPORT INFORMATION
  Report Type: 
  Country: None (occurrence: None)
  Receive Date: 20080108
  Receipt Date: 20071228
  Transmission Date: 20080703
  Serious: Yes (Hospitalization)
  Sender: FDA-Public Use
  Company Number: 2007SP025501

PATIENT
  Age: 76 Year
  Sex: Male

DRUGS (11)
  1. DESLORATADINE [Suspect]
     Indication: HYPERSENSITIVITY
     Dosage: QD; PO
     Route: 048
  2. VERCYTE [Suspect]
     Indication: POLYCYTHAEMIA VERA
     Dosage: 1 DF QD PO
     Route: 048
     Dates: start: 20050101
  3. ISOBAR (METHYCLOTHIAZIDE 5MG/TRIAMTERENE 150 MG) (ISOBAR /00987901/) [Suspect]
     Indication: HYPERTENSION
     Dosage: 1 DF QD PO
     Route: 048
     Dates: start: 20070301, end: 20070810
  4. NEXIUM [Suspect]
     Indication: DRUG USE FOR UNKNOWN INDICATION
     Dosage: 1 DF QD PO
     Route: 048
     Dates: start: 20050101
  5. ALLOPURINOL [Suspect]
     Indication: GOUT
     Dosage: 1 DF QD PO
     Route: 048
     Dates: start: 20050101
  6. ISOPTIN [Suspect]
     Indication: HYPERTENSION
     Dosage: 0.5 DF QD PO
     Route: 048
     Dates: start: 19970101
  7. FLECAINE (FLECAINDE ACETATE) [Suspect]
     Indication: RESPIRATORY DISORDER
     Dosage: 1 DF QD PO
     Route: 048
     Dates: start: 19970101
  8. KARDEGIC (ACETYLSALICYLIC LYSINE) [Suspect]
     Indication: PLATELET AGGREGATION
     Dosage: 75 MG QD PO
     Route: 048
     Dates: start: 20050101
  9. DOLIPRANE [Concomitant]
  10. GAVISCON [Concomitant]
  11. FLIXOVATE [Concomitant]

REACTIONS (5)
  - CREPITATIONS [None]
  - ECZEMA [None]
  - LICHENOID KERATOSIS [None]
  - PRURITUS [None]
  - TOXIC SKIN ERUPTION [None]
